FAERS Safety Report 13586104 (Version 4)
Quarter: 2017Q4

REPORT INFORMATION
  Report Type: Report from Study
  Country: US (occurrence: US)
  Receive Date: 20170526
  Receipt Date: 20171003
  Transmission Date: 20180320
  Serious: Yes (Other)
  Sender: FDA-Public Use
  Company Number: PHHY2016US181882

PATIENT

DRUGS (8)
  1. TOBI PODHALER [Suspect]
     Active Substance: TOBRAMYCIN
     Dosage: 112 OT, BID
     Route: 055
     Dates: start: 20170414, end: 20170512
  2. TOBI PODHALER [Suspect]
     Active Substance: TOBRAMYCIN
     Dosage: 112 OT, BID
     Route: 055
     Dates: start: 20170217, end: 20170317
  3. TOBI PODHALER [Suspect]
     Active Substance: TOBRAMYCIN
     Dosage: 112 OT, BID
     Route: 055
     Dates: start: 20161021, end: 20161118
  4. TOBI PODHALER [Suspect]
     Active Substance: TOBRAMYCIN
     Dosage: 112 OT, BID
     Route: 055
     Dates: start: 20160825, end: 20160922
  5. TOBI PODHALER [Suspect]
     Active Substance: TOBRAMYCIN
     Dosage: 112 OT, BID
     Route: 055
     Dates: start: 20161223, end: 20170120
  6. TOBI PODHALER [Suspect]
     Active Substance: TOBRAMYCIN
     Indication: CYSTIC FIBROSIS
     Dosage: 112 OT, BID
     Route: 055
     Dates: start: 20160309, end: 20160405
  7. TOBI PODHALER [Suspect]
     Active Substance: TOBRAMYCIN
     Indication: PSEUDOMONAS INFECTION
     Dosage: 112 OT, BID
     Route: 055
     Dates: start: 20160504, end: 20160601
  8. TOBI PODHALER [Suspect]
     Active Substance: TOBRAMYCIN
     Dosage: 112 OT, BID
     Route: 055
     Dates: start: 20160630, end: 20160727

REACTIONS (13)
  - Infective pulmonary exacerbation of cystic fibrosis [Recovered/Resolved]
  - Cough [Recovered/Resolved]
  - Infective pulmonary exacerbation of cystic fibrosis [Recovered/Resolved]
  - Infective pulmonary exacerbation of cystic fibrosis [Recovered/Resolved]
  - Pyrexia [Recovered/Resolved]
  - Nausea [Recovered/Resolved]
  - Infective pulmonary exacerbation of cystic fibrosis [Recovered/Resolved]
  - Wrist fracture [Unknown]
  - Vomiting [Recovered/Resolved]
  - Infective pulmonary exacerbation of cystic fibrosis [Recovered/Resolved]
  - Arthralgia [Recovered/Resolved]
  - Sputum increased [Recovered/Resolved]
  - Upper respiratory tract infection [Recovered/Resolved]

NARRATIVE: CASE EVENT DATE: 20160811
